FAERS Safety Report 4332527-5 (Version None)
Quarter: 2004Q2

REPORT INFORMATION
  Report Type: 
  Country: None (occurrence: None)
  Receive Date: 20040401
  Receipt Date: 20040317
  Transmission Date: 20050107
  Serious: Yes (Hospitalization)
  Sender: FDA-Public Use
  Company Number: S04-FRA-01312-01

PATIENT
  Age: 45 Year
  Sex: Female

DRUGS (4)
  1. SEROPRAM(CITALOPRAM HYDROBROMIDE) [Suspect]
     Indication: PANIC ATTACK
     Dosage: 20 MG QD IV
     Route: 042
     Dates: start: 20040201, end: 20040201
  2. SEROPRAM(CITALOPRAM HYDROBROMIDE) [Suspect]
     Indication: PANIC ATTACK
     Dosage: 40 MG QD IV
     Route: 042
     Dates: start: 20040201, end: 20040201
  3. PRAZEPAM [Concomitant]
  4. STILNOX (ZOLPIDEM) [Concomitant]

REACTIONS (10)
  - DERMATOSIS [None]
  - DRY SKIN [None]
  - DYSPHAGIA [None]
  - GENITAL ERYTHEMA [None]
  - OEDEMA GENITAL [None]
  - OEDEMA MOUTH [None]
  - RASH ERYTHEMATOUS [None]
  - SKIN BURNING SENSATION [None]
  - SKIN INFECTION [None]
  - STOMATITIS [None]
